FAERS Safety Report 10380591 (Version 1)
Quarter: 2014Q1

REPORT INFORMATION
  Report Type: Spontaneous
  Country: US (occurrence: None)
  Receive Date: 20140306
  Receipt Date: 20140306
  Transmission Date: 20141002
  Serious: Yes (Other)
  Sender: FDA-Public Use
  Company Number: 163-21880-13094357

PATIENT
  Age: 41 Year
  Sex: Male
  Weight: 65.32 kg

DRUGS (8)
  1. REVLIMID [Suspect]
     Indication: PLASMA CELL MYELOMA
     Route: 048
     Dates: start: 20130503
  2. ATIVAN (LORAZEPAM) [Concomitant]
  3. DEXAMETHASONE (DEXAMETHASONE) [Concomitant]
  4. ZOMETA (ZOLEDRONIC ACID) [Concomitant]
  5. NASONEX (MOMETASONE FUROATE) [Concomitant]
  6. PRILOSEC (OMEPRAZOLE) [Concomitant]
  7. MULTIVITAMINS (MULTIVITAMINS) [Concomitant]
  8. TYLENOL EXTRA STRENGTH (PARACETAMOL) [Concomitant]

REACTIONS (11)
  - Muscle tightness [None]
  - Hypoaesthesia [None]
  - Dizziness [None]
  - Anxiety [None]
  - Tremor [None]
  - Pain of skin [None]
  - Abdominal discomfort [None]
  - Influenza like illness [None]
  - Vision blurred [None]
  - Muscle spasms [None]
  - Rash [None]
